FAERS Safety Report 22208926 (Version 6)
Quarter: 2024Q1

REPORT INFORMATION
  Report Type: Spontaneous
  Country: US (occurrence: US)
  Receive Date: 20230413
  Receipt Date: 20240314
  Transmission Date: 20240409
  Serious: No
  Sender: FDA-Public Use
  Company Number: US-PFIZER INC-PV202300066435

PATIENT
  Age: 71 Year
  Sex: Female

DRUGS (2)
  1. LORBRENA [Suspect]
     Active Substance: LORLATINIB
     Indication: Lung adenocarcinoma
     Dosage: 25 MG, 3X/DAY
     Route: 048
  2. LORBRENA [Suspect]
     Active Substance: LORLATINIB
     Dosage: TAKE 75 MG DAILY BY MOUTH
     Route: 048

REACTIONS (1)
  - Stress [Unknown]
